FAERS Safety Report 4482719-X (Version None)
Quarter: 2004Q3

REPORT INFORMATION
  Report Type: 
  Country: None (occurrence: None)
  Receive Date: 20040921
  Receipt Date: 20040628
  Transmission Date: 20050211
  Serious: Yes (Other)
  Sender: FDA-Public Use
  Company Number: 163-20785-04070001(0)

PATIENT
  Age: 74 Year
  Sex: Male
  Weight: 65.7716 kg

DRUGS (9)
  1. THALOMID [Suspect]
     Indication: METASTATIC MALIGNANT MELANOMA
     Dosage: 200 MG, QHS, ORAL
     Route: 048
     Dates: start: 20040611, end: 20040624
  2. PEG-INTRON [Suspect]
     Indication: METASTATIC MALIGNANT MELANOMA
     Dosage: 33 UG, WEEKLY, SUBCUTANEOUS
     Route: 058
     Dates: start: 20040611, end: 20040618
  3. TOPROL-XL [Concomitant]
  4. ISORDIL [Concomitant]
  5. ACCUPRIL [Concomitant]
  6. PROTONIX [Concomitant]
  7. ACTOS [Concomitant]
  8. LENTE INSULIN [Concomitant]
  9. HUMALOG INSULIN (INSULIN LISPRO) [Concomitant]

REACTIONS (1)
  - DYSPNOEA [None]
